FAERS Safety Report 8369540-7 (Version None)
Quarter: 2012Q2

REPORT INFORMATION
  Report Type: 
  Country: None (occurrence: None)
  Receive Date: 20120518
  Receipt Date: 20120511
  Transmission Date: 20120825
  Serious: Yes (Hospitalization)
  Sender: FDA-Public Use
  Company Number: DE-TEVA-323696USA

PATIENT
  Sex: Male

DRUGS (4)
  1. ALLOPURINOL [Concomitant]
     Dates: start: 20120208
  2. TREANDA [Suspect]
     Dosage: 100 MILLIGRAM;
     Route: 042
     Dates: start: 20120208
  3. RITUXIMAB [Concomitant]
     Dates: start: 20120208
  4. PREDNISOLONE [Concomitant]
     Dates: start: 20120118

REACTIONS (4)
  - ESCHERICHIA SEPSIS [None]
  - CHOLANGITIS ACUTE [None]
  - CHILLS [None]
  - PYREXIA [None]
